FAERS Safety Report 8523502 (Version 10)
Quarter: 2013Q2

REPORT INFORMATION
  Report Type: Spontaneous
  Country: CA (occurrence: CA)
  Receive Date: 20120420
  Receipt Date: 20130412
  Transmission Date: 20140414
  Serious: Yes (Death, Hospitalization, Other)
  Sender: FDA-Public Use
  Company Number: PHHY2012CA014360

PATIENT
  Age: 76 Year
  Sex: Female

DRUGS (3)
  1. SANDOSTATIN LAR [Suspect]
     Indication: ACROMEGALY
     Dosage: 20 MG, EVERY 4 WEEKS
     Route: 030
     Dates: start: 20120213
  2. SANDOSTATIN LAR [Suspect]
     Dosage: 20 MG, EVERY 4 WEEKS
     Route: 030
     Dates: start: 20120731
  3. SANDOSTATIN LAR [Suspect]
     Dosage: 30 MG, EVERY 4 WEEKS
     Route: 030
     Dates: end: 20130117

REACTIONS (20)
  - Death [Fatal]
  - Cardiac arrest [Fatal]
  - Mycobacterial infection [Fatal]
  - Metastases to lung [Fatal]
  - Malignant neoplasm of unknown primary site [Fatal]
  - Syncope [Unknown]
  - Loss of consciousness [Unknown]
  - Thrombosis [Unknown]
  - Eye haemorrhage [Unknown]
  - Ocular hyperaemia [Recovering/Resolving]
  - Blood blister [Unknown]
  - Blood pressure increased [Unknown]
  - Injection site haemorrhage [Unknown]
  - Sensation of pressure [Recovering/Resolving]
  - Pallor [Unknown]
  - Dizziness [Recovering/Resolving]
  - Feeling hot [Unknown]
  - Body temperature decreased [Recovered/Resolved]
  - Fatigue [Recovering/Resolving]
  - Feeling cold [Recovering/Resolving]
